FAERS Safety Report 15151901 (Version 4)
Quarter: 2018Q3

REPORT INFORMATION
  Report Type: Spontaneous
  Country: DE (occurrence: DE)
  Receive Date: 20180717
  Receipt Date: 20180925
  Transmission Date: 20181010
  Serious: Yes (Other)
  Sender: FDA-Public Use
  Company Number: DE-MERCK KGAA-2052193

PATIENT
  Sex: Male

DRUGS (2)
  1. EUTHYROX [Suspect]
     Active Substance: LEVOTHYROXINE SODIUM
     Dates: start: 20180707
  2. EUTHYROX [Suspect]
     Active Substance: LEVOTHYROXINE SODIUM
     Indication: AUTOIMMUNE THYROIDITIS

REACTIONS (23)
  - Malaise [None]
  - Tremor [None]
  - Vibratory sense increased [None]
  - Drug hypersensitivity [None]
  - Anxiety [None]
  - Throat tightness [None]
  - Chest discomfort [None]
  - Headache [Not Recovered/Not Resolved]
  - Decreased appetite [Recovering/Resolving]
  - Hyperthyroidism [None]
  - Chest pain [None]
  - Panic attack [Recovering/Resolving]
  - Hypotension [None]
  - Circulatory collapse [None]
  - Heart rate decreased [None]
  - Dizziness [Not Recovered/Not Resolved]
  - Fatigue [None]
  - Asthenia [None]
  - Feeling abnormal [None]
  - Overdose [None]
  - Blood thyroid stimulating hormone decreased [None]
  - Tonsillitis [None]
  - Weight decreased [None]

NARRATIVE: CASE EVENT DATE: 2018
